FAERS Safety Report 10842231 (Version 1)
Quarter: 2015Q1

REPORT INFORMATION
  Report Type: Spontaneous
  Country: AT (occurrence: AT)
  Receive Date: 20150220
  Receipt Date: 20150220
  Transmission Date: 20150721
  Serious: Yes (Hospitalization)
  Sender: FDA-Public Use
  Company Number: AT-WATSON-2015-02608

PATIENT
  Age: 19 Year
  Sex: Female

DRUGS (29)
  1. ATARAX [Concomitant]
     Active Substance: HYDROXYZINE\HYDROXYZINE HYDROCHLORIDE
     Dosage: 50 MG, DAILY
     Route: 065
     Dates: start: 20141118, end: 20141118
  2. ABILIFY [Concomitant]
     Active Substance: ARIPIPRAZOLE
     Indication: PRODUCT USED FOR UNKNOWN INDICATION
     Dosage: 5 MG, DAILY
     Route: 065
     Dates: start: 20141114, end: 20141116
  3. MIRTABENE [Concomitant]
     Active Substance: MIRTAZAPINE
     Indication: PRODUCT USED FOR UNKNOWN INDICATION
     Dosage: 15 MG, DAILY
     Route: 065
     Dates: start: 20141201
  4. OMNI BIOTIC 6 [Concomitant]
     Indication: PRODUCT USED FOR UNKNOWN INDICATION
     Dosage: 1 DF, DAILY
     Route: 065
     Dates: end: 20141112
  5. SEROQUEL [Suspect]
     Active Substance: QUETIAPINE FUMARATE
     Dosage: 50 MG, DAILY
     Route: 065
     Dates: start: 20141104, end: 20141105
  6. TEMESTA                            /00273201/ [Concomitant]
     Active Substance: LORAZEPAM
     Indication: PRODUCT USED FOR UNKNOWN INDICATION
     Dosage: 1-2 MG
     Dates: start: 20141103, end: 20141105
  7. PRAXITEN [Concomitant]
     Active Substance: OXAZEPAM
     Indication: PRODUCT USED FOR UNKNOWN INDICATION
     Dosage: 15 MG, DAILY
     Route: 065
     Dates: start: 20141115, end: 20141115
  8. TRITTICO [Concomitant]
     Active Substance: TRAZODONE HYDROCHLORIDE
     Dosage: 25 MG, DAILY
     Route: 065
     Dates: start: 20141121, end: 20141123
  9. PRAXITEN [Concomitant]
     Active Substance: OXAZEPAM
     Dosage: 7.5 MG, DAILY
     Route: 065
     Dates: start: 20141107, end: 20141111
  10. ZOLDEM [Concomitant]
     Active Substance: ZOLPIDEM TARTRATE
     Dosage: 10 MG, DAILY
     Route: 065
     Dates: start: 20141107, end: 20141201
  11. SERTRALINE [Suspect]
     Active Substance: SERTRALINE HYDROCHLORIDE
     Dosage: 25 MG, DAILY
     Route: 065
     Dates: start: 20141103, end: 20141103
  12. PRAXITEN [Concomitant]
     Active Substance: OXAZEPAM
     Dosage: 15 UNK, UNK
     Route: 065
     Dates: start: 20141106, end: 20141106
  13. AERIUS [Concomitant]
     Active Substance: DESLORATADINE
     Indication: PRODUCT USED FOR UNKNOWN INDICATION
     Dosage: 5 MG, DAILY
     Route: 065
     Dates: start: 20141107, end: 20141113
  14. CIPRALEX [Concomitant]
     Active Substance: ESCITALOPRAM OXALATE
     Indication: PRODUCT USED FOR UNKNOWN INDICATION
     Dosage: 15 MG, DAILY
     Route: 065
     Dates: start: 20141203
  15. MEXALEN [Concomitant]
     Active Substance: LUBIPROSTONE
     Indication: PRODUCT USED FOR UNKNOWN INDICATION
     Dosage: 500 MG, DAILY
     Route: 065
     Dates: start: 20141126, end: 20141126
  16. SEROQUEL [Suspect]
     Active Substance: QUETIAPINE FUMARATE
     Indication: PRODUCT USED FOR UNKNOWN INDICATION
     Dosage: 75 MG, DAILY
     Route: 065
     Dates: start: 20141110, end: 20141110
  17. ATARAX [Concomitant]
     Active Substance: HYDROXYZINE\HYDROXYZINE HYDROCHLORIDE
     Indication: PRODUCT USED FOR UNKNOWN INDICATION
     Dosage: 25 MG, DAILY
     Route: 065
     Dates: start: 20141121, end: 20141121
  18. ATARAX [Concomitant]
     Active Substance: HYDROXYZINE\HYDROXYZINE HYDROCHLORIDE
     Dosage: 25 MG, DAILY
     Route: 065
     Dates: start: 20141114, end: 20141116
  19. ZOLDEM [Concomitant]
     Active Substance: ZOLPIDEM TARTRATE
     Indication: PRODUCT USED FOR UNKNOWN INDICATION
     Dosage: 5 MG, DAILY
     Route: 065
     Dates: start: 20141202, end: 20141203
  20. CIPRALEX [Concomitant]
     Active Substance: ESCITALOPRAM OXALATE
     Dosage: 5 MG, DAILY
     Route: 065
     Dates: start: 20141108, end: 20141108
  21. MEXALEN [Concomitant]
     Active Substance: LUBIPROSTONE
     Dosage: 500 MG, DAILY
     Route: 065
     Dates: start: 20141112, end: 20141112
  22. ABILIFY [Concomitant]
     Active Substance: ARIPIPRAZOLE
     Dosage: 2.5 MG, DAILY
     Route: 065
     Dates: start: 20141112, end: 20141113
  23. ATARAX [Concomitant]
     Active Substance: HYDROXYZINE\HYDROXYZINE HYDROCHLORIDE
     Dosage: 25-50 MG DAILY
     Route: 065
     Dates: start: 20141106, end: 20141110
  24. MEXALEN [Concomitant]
     Active Substance: LUBIPROSTONE
     Dosage: 500 MG, DAILY
     Route: 065
     Dates: start: 20141123, end: 20141124
  25. AKINETON [Concomitant]
     Active Substance: BIPERIDEN HYDROCHLORIDE
     Indication: PRODUCT USED FOR UNKNOWN INDICATION
     Dosage: 2 MG, DAILY
     Route: 065
     Dates: start: 20141116, end: 20141116
  26. SERTRALINE [Suspect]
     Active Substance: SERTRALINE HYDROCHLORIDE
     Indication: PRODUCT USED FOR UNKNOWN INDICATION
     Dosage: 50 MG, DAILY
     Route: 065
     Dates: start: 20141104, end: 20141106
  27. HOVA [Concomitant]
     Active Substance: HOPS\VALERIAN
     Indication: PRODUCT USED FOR UNKNOWN INDICATION
     Dosage: 1 DF, DAILY
     Route: 065
     Dates: start: 20141106, end: 20141106
  28. CIPRALEX [Concomitant]
     Active Substance: ESCITALOPRAM OXALATE
     Dosage: 10 MG, DAILY
     Route: 065
     Dates: start: 20141109, end: 20141202
  29. TRITTICO [Concomitant]
     Active Substance: TRAZODONE HYDROCHLORIDE
     Indication: PRODUCT USED FOR UNKNOWN INDICATION
     Dosage: 50 MG, DAILY
     Route: 065
     Dates: start: 20141124, end: 20141130

REACTIONS (1)
  - Dermatitis allergic [Recovered/Resolved]

NARRATIVE: CASE EVENT DATE: 20141106
